FAERS Safety Report 8155589-6 (Version None)
Quarter: 2012Q1

REPORT INFORMATION
  Report Type: 
  Country: None (occurrence: None)
  Receive Date: 20120222
  Receipt Date: 20120210
  Transmission Date: 20120608
  Serious: Yes (Other)
  Sender: FDA-Public Use
  Company Number: PHHY2012JP010776

PATIENT

DRUGS (1)
  1. VOLTAREN [Suspect]
     Route: 054

REACTIONS (1)
  - RENAL DISORDER [None]
